FAERS Safety Report 8479890-1 (Version None)
Quarter: 2012Q2

REPORT INFORMATION
  Report Type: 
  Country: None (occurrence: None)
  Receive Date: 20120629
  Receipt Date: 20120625
  Transmission Date: 20120825
  Serious: Yes (Other)
  Sender: FDA-Public Use
  Company Number: US-ABBOTT-12P-163-0951066-00

PATIENT
  Sex: Male
  Weight: 93.07 kg

DRUGS (7)
  1. ZOCOR [Concomitant]
     Indication: BLOOD CHOLESTEROL INCREASED
  2. NIACIN [Concomitant]
     Indication: BLOOD CHOLESTEROL INCREASED
  3. METOPROLOL SUCCINATE [Concomitant]
     Indication: HEART RATE ABNORMAL
  4. ASPIRIN [Concomitant]
     Indication: PRODUCT USED FOR UNKNOWN INDICATION
  5. ANDROGEL [Suspect]
     Indication: BLOOD TESTOSTERONE DECREASED
     Dosage: 1 PACKET TO EACH SHOULDER
     Route: 061
     Dates: start: 20120101, end: 20120401
  6. PLAVIX [Concomitant]
     Indication: CARDIAC DISORDER
  7. NORVASC [Concomitant]
     Indication: HYPERTENSION

REACTIONS (6)
  - NEPHROLITHIASIS [None]
  - RENAL PAIN [None]
  - BLOOD TESTOSTERONE ABNORMAL [None]
  - URINARY SEDIMENT PRESENT [None]
  - CHROMATURIA [None]
  - ASTHENIA [None]
